FAERS Safety Report 23274457 (Version 1)
Quarter: 2023Q4

REPORT INFORMATION
  Report Type: Spontaneous
  Country: US (occurrence: US)
  Receive Date: 20231208
  Receipt Date: 20231208
  Transmission Date: 20240109
  Serious: No
  Sender: FDA-Public Use
  Company Number: US-AUROBINDO-AUR-APL-2023-059592

PATIENT
  Age: 84 Year
  Sex: Female

DRUGS (2)
  1. MIRTAZAPINE [Suspect]
     Active Substance: MIRTAZAPINE
     Indication: Depression
     Dosage: UNK, ONCE A DAY(AT NIGHT)
     Route: 048
     Dates: start: 20230808
  2. MIRTAZAPINE [Suspect]
     Active Substance: MIRTAZAPINE
     Indication: Anxiety

REACTIONS (5)
  - Arthralgia [Unknown]
  - Back pain [Unknown]
  - Dry mouth [Unknown]
  - Fatigue [Unknown]
  - Musculoskeletal stiffness [Unknown]
